FAERS Safety Report 21380293 (Version 3)
Quarter: 2022Q4

REPORT INFORMATION
  Report Type: Spontaneous
  Country: FR (occurrence: FR)
  Receive Date: 20220927
  Receipt Date: 20221109
  Transmission Date: 20230112
  Serious: Yes (Other)
  Sender: FDA-Public Use
  Company Number: None

PATIENT
  Age: 40 Year
  Sex: Female
  Weight: 50 kg

DRUGS (4)
  1. FINGOLIMOD [Suspect]
     Active Substance: FINGOLIMOD
     Indication: Multiple sclerosis
     Dosage: 0.5 MILLIGRAM, QD (0.5MG/DAY)
     Route: 048
     Dates: start: 20220615, end: 20220707
  2. GILENYA [Suspect]
     Active Substance: FINGOLIMOD HYDROCHLORIDE
     Indication: Multiple sclerosis
     Dosage: 0.5 MILLIGRAM, QD (1/D 0.5MG/DAY)
     Route: 048
     Dates: start: 201505, end: 20220615
  3. FINGOLIMOD HYDROCHLORIDE [Suspect]
     Active Substance: FINGOLIMOD HYDROCHLORIDE
     Indication: Multiple sclerosis
     Dosage: 0.5 MILLIGRAM, QD (0.5MG/DAY)
     Route: 048
     Dates: start: 20220615, end: 20220707
  4. FINGOLIMOD HYDROCHLORIDE [Suspect]
     Active Substance: FINGOLIMOD HYDROCHLORIDE
     Dosage: 0.5 MILLIGRAM, QD (0.5MG/DAY)
     Route: 048
     Dates: start: 20220708, end: 20220722

REACTIONS (3)
  - Condition aggravated [Recovering/Resolving]
  - Product substitution issue [Recovering/Resolving]
  - Liver injury [Recovering/Resolving]

NARRATIVE: CASE EVENT DATE: 20220601
